FAERS Safety Report 13209095 (Version 1)
Quarter: 2017Q1

REPORT INFORMATION
  Report Type: Spontaneous
  Country: US (occurrence: US)
  Receive Date: 20170209
  Receipt Date: 20170209
  Transmission Date: 20170428
  Serious: No
  Sender: FDA-Public Use
  Company Number: US-ELI_LILLY_AND_COMPANY-US201608000967

PATIENT
  Sex: Female
  Weight: 109.75 kg

DRUGS (2)
  1. CYMBALTA [Suspect]
     Active Substance: DULOXETINE HYDROCHLORIDE
     Indication: FIBROMYALGIA
  2. CYMBALTA [Suspect]
     Active Substance: DULOXETINE HYDROCHLORIDE
     Indication: DEPRESSION
     Dosage: 60 MG, QD
     Route: 048

REACTIONS (8)
  - Drug withdrawal syndrome [Unknown]
  - Irritability [Unknown]
  - Dizziness [Unknown]
  - Affect lability [Unknown]
  - Drug dose omission [Unknown]
  - Fatigue [Unknown]
  - Abdominal pain upper [Unknown]
  - Lethargy [Unknown]
